FAERS Safety Report 8946981 (Version 4)
Quarter: 2013Q1

REPORT INFORMATION
  Report Type: Spontaneous
  Country: IT (occurrence: IT)
  Receive Date: 20121205
  Receipt Date: 20130226
  Transmission Date: 20140127
  Serious: Yes (Other)
  Sender: FDA-Public Use
  Company Number: IT-PFIZER INC-2012299610

PATIENT
  Age: 64 Year
  Sex: Female

DRUGS (1)
  1. LINCOCIN [Suspect]
     Indication: SINUSITIS
     Dosage: 1-2 TIMES A YEAR
     Route: 045
     Dates: start: 1997, end: 20121126

REACTIONS (2)
  - Drug administered at inappropriate site [Recovering/Resolving]
  - Eye burns [Recovering/Resolving]
